FAERS Safety Report 7025108-6 (Version None)
Quarter: 2010Q4

REPORT INFORMATION
  Report Type: 
  Country: None (occurrence: None)
  Receive Date: 20101001
  Receipt Date: 20100923
  Transmission Date: 20110411
  Serious: Yes (Hospitalization)
  Sender: FDA-Public Use
  Company Number: US-NAPPMUNDI-USA-2010-0046282

PATIENT
  Sex: Female
  Weight: 136.5 kg

DRUGS (8)
  1. OXYCONTIN [Suspect]
     Indication: BACK PAIN
     Dosage: 240 MG, Q12H
  2. OXYCONTIN [Suspect]
     Indication: ARTHRALGIA
  3. OXYCONTIN [Suspect]
     Indication: OSTEOARTHRITIS
  4. VICODIN [Concomitant]
     Indication: PRODUCT USED FOR UNKNOWN INDICATION
     Dosage: 240 MG, DAILY
  5. SOMA [Concomitant]
     Indication: PRODUCT USED FOR UNKNOWN INDICATION
     Dosage: 240 MG, DAILY
  6. XANAX [Concomitant]
     Indication: PRODUCT USED FOR UNKNOWN INDICATION
     Dosage: 2 MG, DAILY
  7. VALIUM [Concomitant]
     Indication: PRODUCT USED FOR UNKNOWN INDICATION
     Dosage: UNK
  8. PHENERGAN WITH CODEINE             /00072201/ [Concomitant]
     Indication: INSOMNIA
     Dosage: 48 OZ, DAILY

REACTIONS (5)
  - COSTOCHONDRITIS [None]
  - NAUSEA [None]
  - PNEUMONIA ASPIRATION [None]
  - SPUTUM DISCOLOURED [None]
  - VOMITING [None]
